FAERS Safety Report 5780446-X (Version None)
Quarter: 2008Q2

REPORT INFORMATION
  Report Type: 
  Country: None (occurrence: None)
  Receive Date: 20080620
  Receipt Date: 20080616
  Transmission Date: 20081010
  Serious: Yes (Other)
  Sender: FDA-Public Use
  Company Number: TW-BRISTOL-MYERS SQUIBB COMPANY-14229819

PATIENT
  Age: 15 Month
  Sex: Male

DRUGS (15)
  1. ETOPOSIDE [Suspect]
     Indication: PANCYTOPENIA
  2. ETOPOSIDE [Suspect]
     Indication: HYPERLIPIDAEMIA
  3. ETOPOSIDE [Suspect]
     Indication: HYPOCOAGULABLE STATE
  4. ETOPOSIDE [Suspect]
     Indication: HISTIOCYTOSIS HAEMATOPHAGIC
  5. CYCLOPHOSPHAMIDE [Suspect]
     Indication: MALIGNANT HISTIOCYTOSIS
  6. VINCRISTINE SULFATE [Suspect]
     Indication: MALIGNANT HISTIOCYTOSIS
  7. METHOTREXATE [Suspect]
     Indication: PROPHYLAXIS AGAINST GRAFT VERSUS HOST DISEASE
     Dosage: 15MG/M2 ON DAY+1 + 10MG/M2 ON DAY+3,+6,+11.
  8. METHOTREXATE [Suspect]
     Indication: MALIGNANT HISTIOCYTOSIS
     Dosage: 15MG/M2 ON DAY+1 + 10MG/M2 ON DAY+3,+6,+11.
  9. PREDNISOLONE [Suspect]
     Indication: MALIGNANT HISTIOCYTOSIS
  10. PREDNISOLONE [Suspect]
     Indication: PANCYTOPENIA
  11. PREDNISOLONE [Suspect]
     Indication: HYPERLIPIDAEMIA
  12. PREDNISOLONE [Suspect]
     Indication: HYPOCOAGULABLE STATE
  13. PREDNISOLONE [Suspect]
     Indication: HISTIOCYTOSIS HAEMATOPHAGIC
  14. MERCAPTOPURINE [Suspect]
     Indication: MALIGNANT HISTIOCYTOSIS
  15. CYCLOSPORINE [Suspect]
     Indication: PROPHYLAXIS AGAINST GRAFT VERSUS HOST DISEASE
     Dosage: 3MG/KG,BID,FROM DAY +4 TO +22;DOSE DECREASED TO 1.5MG/KG,BID,DAY +23.
     Route: 042

REACTIONS (3)
  - ENCEPHALOPATHY [None]
  - HYPERTENSION [None]
  - MALIGNANT HISTIOCYTOSIS [None]
